FAERS Safety Report 20812105 (Version 2)
Quarter: 2022Q2

REPORT INFORMATION
  Report Type: Report from Study
  Country: BE (occurrence: BE)
  Receive Date: 20220511
  Receipt Date: 20220624
  Transmission Date: 20220721
  Serious: No
  Sender: FDA-Public Use
  Company Number: BE-BEH-2022145138

PATIENT
  Sex: Female

DRUGS (4)
  1. HIZENTRA [Interacting]
     Active Substance: HUMAN IMMUNOGLOBULIN G
     Indication: Product used for unknown indication
     Dosage: 8 GRAM, QW
     Route: 058
  2. HIZENTRA [Interacting]
     Active Substance: HUMAN IMMUNOGLOBULIN G
     Dosage: 8 GRAM, QW
     Route: 058
  3. HIZENTRA [Interacting]
     Active Substance: HUMAN IMMUNOGLOBULIN G
     Dosage: 8 GRAM, QW
     Route: 058
  4. AZITHROMYCIN ANHYDROUS [Interacting]
     Active Substance: AZITHROMYCIN ANHYDROUS
     Indication: Product used for unknown indication

REACTIONS (10)
  - Palpitations [Unknown]
  - Fall [Unknown]
  - Peripheral swelling [Unknown]
  - Hypoaesthesia oral [Unknown]
  - Drug interaction [Unknown]
  - Drug interaction [Unknown]
  - Drug interaction [Unknown]
  - Drug interaction [Unknown]
  - No adverse event [Unknown]
  - Therapy interrupted [Unknown]
